FAERS Safety Report 9972643 (Version 1)
Quarter: 2014Q1

REPORT INFORMATION
  Report Type: Report from Study
  Country: US (occurrence: US)
  Receive Date: 20140306
  Receipt Date: 20140306
  Transmission Date: 20141002
  Serious: No
  Sender: FDA-Public Use
  Company Number: US-ABBVIE-13P-163-1154346-00

PATIENT
  Age: 26 Year
  Sex: Female

DRUGS (10)
  1. HUMIRA [Suspect]
     Indication: COLITIS ULCERATIVE
     Dates: start: 20130806, end: 20130806
  2. HUMIRA [Suspect]
     Dates: start: 20130821, end: 20130821
  3. HUMIRA [Suspect]
     Dates: start: 20130905, end: 20130905
  4. HUMIRA [Suspect]
  5. PREDNISONE [Concomitant]
     Indication: PRODUCT USED FOR UNKNOWN INDICATION
     Dosage: 5 MG DAILY ON TAPER FOR THE LAST 2.5 MONTHS
  6. LIALDA [Concomitant]
     Indication: PRODUCT USED FOR UNKNOWN INDICATION
     Dosage: 4 TABLETS DAILY
  7. AZATHIOPRINE [Concomitant]
     Indication: PRODUCT USED FOR UNKNOWN INDICATION
     Dosage: 2 TABLETS DAILY
  8. OVER THE COUNTER MEDICATION [Concomitant]
     Indication: HYPERSENSITIVITY
  9. STEROID ANTIBACTERIALS [Concomitant]
     Indication: HYPERSENSITIVITY
  10. IMITREX [Concomitant]
     Indication: MIGRAINE

REACTIONS (4)
  - Medication error [Unknown]
  - Oropharyngeal pain [Recovered/Resolved]
  - Lymphadenopathy [Recovered/Resolved]
  - Metrorrhagia [Recovered/Resolved]
